FAERS Safety Report 14506661 (Version 2)
Quarter: 2018Q1

REPORT INFORMATION
  Report Type: Spontaneous
  Country: SK (occurrence: SK)
  Receive Date: 20180208
  Receipt Date: 20180308
  Transmission Date: 20180509
  Serious: Yes (Other)
  Sender: FDA-Public Use
  Company Number: SK-TEVA-2018-SK-857036

PATIENT
  Age: 11 Year
  Sex: Male

DRUGS (5)
  1. CEFOTAXIME [Suspect]
     Active Substance: CEFOTAXIME SODIUM
     Indication: BRAIN ABSCESS
  2. CEFOTAXIME [Suspect]
     Active Substance: CEFOTAXIME SODIUM
     Indication: PLEOCYTOSIS
     Route: 065
  3. METRONIDAZOL [Suspect]
     Active Substance: METRONIDAZOLE
     Indication: BRAIN ABSCESS
     Route: 065
  4. VANCOMYCINE [Suspect]
     Active Substance: VANCOMYCIN
     Indication: BRAIN ABSCESS
     Route: 065
  5. ACICLOVIR [Suspect]
     Active Substance: ACYCLOVIR
     Indication: PLEOCYTOSIS
     Route: 065

REACTIONS (2)
  - Condition aggravated [Not Recovered/Not Resolved]
  - Drug ineffective [Unknown]
